FAERS Safety Report 18251747 (Version 1)
Quarter: 2020Q3

REPORT INFORMATION
  Report Type: Spontaneous
  Country: CA (occurrence: CA)
  Receive Date: 20200910
  Receipt Date: 20200910
  Transmission Date: 20201103
  Serious: Yes (Other)
  Sender: FDA-Public Use
  Company Number: CA-ACCORD-199950

PATIENT
  Age: 61 Year
  Sex: Female

DRUGS (21)
  1. GLYBURIDE. [Concomitant]
     Active Substance: GLYBURIDE
     Route: 048
  2. LANTUS [Concomitant]
     Active Substance: INSULIN GLARGINE
     Dosage: SOLUTION SUBCUTANEOUS
     Route: 048
  3. TEMAZEPAM. [Concomitant]
     Active Substance: TEMAZEPAM
     Route: 048
  4. PREGABALIN. [Concomitant]
     Active Substance: PREGABALIN
     Route: 048
  5. HYDROXYCHLOROQUINE [Concomitant]
     Active Substance: HYDROXYCHLOROQUINE
     Route: 048
  6. POTASSIUM CHLORIDE. [Concomitant]
     Active Substance: POTASSIUM CHLORIDE
     Route: 048
  7. XELJANZ [Suspect]
     Active Substance: TOFACITINIB CITRATE
     Indication: PSORIATIC ARTHROPATHY
     Route: 048
  8. RANITIDINE. [Concomitant]
     Active Substance: RANITIDINE
     Route: 048
  9. ONDANSETRON [Concomitant]
     Active Substance: ONDANSETRON
     Route: 048
  10. METHOTREXATE. [Suspect]
     Active Substance: METHOTREXATE
     Indication: PRODUCT USED FOR UNKNOWN INDICATION
     Route: 058
  11. LORAZEPAM. [Concomitant]
     Active Substance: LORAZEPAM
     Route: 048
  12. MONTELUKAST [Concomitant]
     Active Substance: MONTELUKAST SODIUM
     Route: 048
  13. NARATRIPTAN/NARATRIPTAN HYDROCHLORIDE [Concomitant]
     Route: 048
  14. PREDNISONE. [Suspect]
     Active Substance: PREDNISONE
     Indication: PRODUCT USED FOR UNKNOWN INDICATION
     Route: 048
  15. LANSOPRAZOLE. [Concomitant]
     Active Substance: LANSOPRAZOLE
  16. LEUCOVORIN. [Concomitant]
     Active Substance: LEUCOVORIN
     Route: 048
  17. LEVOTHYROXINE. [Concomitant]
     Active Substance: LEVOTHYROXINE
     Route: 048
  18. PILOCARPINE. [Concomitant]
     Active Substance: PILOCARPINE
     Route: 048
  19. CYCLOBENZAPRINE. [Concomitant]
     Active Substance: CYCLOBENZAPRINE
     Route: 048
  20. DOMPERIDONE [Concomitant]
     Active Substance: DOMPERIDONE
     Route: 048
  21. METFORMIN [Concomitant]
     Active Substance: METFORMIN HYDROCHLORIDE
     Route: 048

REACTIONS (2)
  - Influenza [Unknown]
  - Rheumatoid arthritis [Unknown]
